FAERS Safety Report 23116580 (Version 4)
Quarter: 2024Q3

REPORT INFORMATION
  Report Type: Report from Study
  Country: BR (occurrence: BR)
  Receive Date: 20231027
  Receipt Date: 20240704
  Transmission Date: 20241016
  Serious: Yes (Death, Other)
  Sender: TAKEDA
  Company Number: BR-TAKEDA-2023TUS104024

PATIENT
  Age: 25 Year
  Sex: Male

DRUGS (13)
  1. VELAGLUCERASE ALFA [Suspect]
     Active Substance: VELAGLUCERASE ALFA
     Indication: Gaucher^s disease
     Dosage: 50 INTERNATIONAL UNIT/KILOGRAM, Q2WEEKS
     Route: 065
     Dates: start: 20141209, end: 202005
  2. VELAGLUCERASE ALFA [Suspect]
     Active Substance: VELAGLUCERASE ALFA
     Dosage: 60 INTERNATIONAL UNIT/KILOGRAM, Q2WEEKS
     Route: 065
     Dates: start: 20200602
  3. VITAMIN E [Concomitant]
     Active Substance: .ALPHA.-TOCOPHEROL
     Indication: Osteopenia
     Dosage: UNK UNK, 1/WEEK
     Route: 048
     Dates: start: 20071123, end: 200801
  4. VITAMIN D [Concomitant]
     Active Substance: VITAMIN D NOS
     Indication: Osteopenia
     Dosage: 1/WEEK
     Route: 048
     Dates: start: 20071123
  5. VITAMIN D [Concomitant]
     Active Substance: VITAMIN D NOS
     Indication: Vitamin D deficiency
     Dosage: UNK, QD
     Route: 048
     Dates: start: 20130309, end: 20150710
  6. VITAMIN A [Concomitant]
     Active Substance: VITAMIN A
     Indication: Osteopenia
     Dosage: UNK UNK, 1/WEEK
     Route: 048
     Dates: start: 20071123, end: 201907
  7. VITAMIN A [Concomitant]
     Active Substance: VITAMIN A
     Indication: Vitamin D deficiency
     Dosage: UNK, QD
     Route: 048
     Dates: start: 20130309, end: 20150710
  8. VITAMIN B6 [Concomitant]
     Active Substance: PYRIDOXINE HYDROCHLORIDE
     Indication: Osteopenia
     Dosage: UNK UNK, 1/WEEK
     Route: 048
     Dates: start: 20071123, end: 200801
  9. CALCIUM CARBONATE [Concomitant]
     Active Substance: CALCIUM CARBONATE
     Indication: Osteopenia
     Dosage: UNK UNK, 1/WEEK
     Route: 048
     Dates: start: 20071123
  10. ALBENDAZOLE [Concomitant]
     Active Substance: ALBENDAZOLE
     Indication: Eosinophilia
     Dosage: UNK UNK, QD
     Route: 048
     Dates: start: 20130308, end: 20130313
  11. NEROLOM [Concomitant]
     Indication: Hypovitaminosis
     Dosage: UNK UNK, BID
     Route: 065
     Dates: start: 20160513, end: 201804
  12. ALENDRONATE [Concomitant]
     Active Substance: ALENDRONATE SODIUM
     Indication: Osteoporosis
     Dosage: UNK UNK, 1/WEEK
     Route: 048
     Dates: start: 20170730, end: 20180109
  13. PAMIDRONATE [Concomitant]
     Active Substance: PAMIDRONATE DISODIUM
     Indication: Osteoporosis
     Dosage: UNK
     Route: 065
     Dates: start: 20180109, end: 20181009

REACTIONS (1)
  - Death [Fatal]

NARRATIVE: CASE EVENT DATE: 20231024
